FAERS Safety Report 8168795-1 (Version None)
Quarter: 2012Q1

REPORT INFORMATION
  Report Type: 
  Country: None (occurrence: None)
  Receive Date: 20120227
  Receipt Date: 20120222
  Transmission Date: 20120608
  Serious: Yes (Hospitalization, Disabling)
  Sender: FDA-Public Use
  Company Number: JP-PFIZER INC-2012029393

PATIENT
  Age: 69 Year
  Sex: Male
  Weight: 74 kg

DRUGS (22)
  1. AMARYL [Concomitant]
     Dosage: 1 MG, 2X/DAY
     Route: 048
  2. GABAPENTIN [Suspect]
     Dosage: 200 MG/DAY
     Route: 048
     Dates: start: 20090724, end: 20090917
  3. TEGRETOL [Concomitant]
     Indication: NEUROPATHY PERIPHERAL
     Dosage: 100 MG, 3X/DAY
     Route: 048
  4. ASPIRIN [Concomitant]
     Dosage: 100 MG, 1X/DAY
     Route: 048
  5. PLAVIX [Concomitant]
     Dosage: 75 MG, 1X/DAY
     Route: 048
  6. ROCALTROL [Concomitant]
     Dosage: 10 MG, 1X/DAY
     Route: 048
  7. CRESTOR [Concomitant]
     Dosage: 10 MG, 1X/DAY
     Route: 048
  8. TRICHLORMETHIAZIDE [Concomitant]
     Dosage: 2 MG, 1X/DAY
     Route: 048
  9. MIGLITOL [Concomitant]
     Dosage: 50 MG, 3X/DAY
     Route: 048
  10. RABEPRAZOLE SODIUM [Concomitant]
     Dosage: 10 MG, 1X/DAY
     Route: 048
  11. DOXAZOSIN MESYLATE [Concomitant]
     Dosage: 2 MG, 1X/DAY
     Route: 048
  12. ACECOL [Concomitant]
     Dosage: 2 MG, 1X/DAY
     Route: 048
  13. KREMEZIN [Concomitant]
     Dosage: 2 G, 3X/DAY
     Route: 048
  14. GABAPENTIN [Suspect]
     Dosage: 600 MG/DAY
     Route: 048
     Dates: start: 20100219, end: 20120118
  15. CONIEL [Concomitant]
     Dosage: 4 MG, 2X/DAY
     Route: 048
  16. PLETAL [Concomitant]
     Dosage: 100 MG, 2X/DAY
     Route: 048
  17. DIART [Concomitant]
     Dosage: 60 MG, 1X/DAY
     Route: 048
  18. GABAPENTIN [Suspect]
     Dosage: 400 MG/DAY
     Route: 048
     Dates: start: 20090918, end: 20100218
  19. METHYCOBAL [Concomitant]
     Indication: NEUROPATHY PERIPHERAL
     Dosage: 500 UG, 3X/DAY
     Route: 048
  20. ZETIA [Concomitant]
     Dosage: 2 MG, 1X/DAY
     Route: 048
  21. MICARDIS [Concomitant]
     Dosage: 80 MG, 1X/DAY
     Route: 048
  22. AMLODIPINE [Concomitant]
     Dosage: 5 MG, 1X/DAY
     Route: 048

REACTIONS (3)
  - SPEECH DISORDER [None]
  - DIABETIC NEPHROPATHY [None]
  - MYOCLONUS [None]
